FAERS Safety Report 7088624-7 (Version None)
Quarter: 2010Q4

REPORT INFORMATION
  Report Type: 
  Country: None (occurrence: None)
  Receive Date: 20101029
  Receipt Date: 20101018
  Transmission Date: 20110411
  Serious: Yes (Other)
  Sender: FDA-Public Use
  Company Number: 2010P1002096

PATIENT
  Age: 16 Year
  Sex: Male

DRUGS (1)
  1. METOCLOPRAMIDE [Suspect]
     Indication: NAUSEA
     Dosage: 3 DOSES

REACTIONS (8)
  - CEREBRAL ATROPHY [None]
  - CHOREA [None]
  - CONDITION AGGRAVATED [None]
  - DRUG EFFECT DECREASED [None]
  - DYSTONIA [None]
  - HYPERKINESIA [None]
  - MULTIPLE-DRUG RESISTANCE [None]
  - MUSCLE SPASMS [None]
